FAERS Safety Report 8505579-6 (Version None)
Quarter: 2012Q3

REPORT INFORMATION
  Report Type: 
  Country: None (occurrence: None)
  Receive Date: 20120712
  Receipt Date: 20120710
  Transmission Date: 20120928
  Serious: Yes (Hospitalization, Disabling)
  Sender: FDA-Public Use
  Company Number: PH-JNJFOC-20110804785

PATIENT
  Sex: Male
  Weight: 75.5 kg

DRUGS (4)
  1. TUSSAMINIC C FORTE [Concomitant]
     Indication: COUGH
     Dates: start: 20110805, end: 20110805
  2. INVEGA SUSTENNA [Suspect]
     Route: 030
     Dates: start: 20110729
  3. INVEGA SUSTENNA [Suspect]
     Indication: SCHIZOPHRENIA
     Route: 030
     Dates: start: 20100915
  4. CLONAZEPAM [Concomitant]
     Indication: ANXIETY
     Dates: start: 20100922

REACTIONS (1)
  - DENGUE FEVER [None]
